FAERS Safety Report 18242361 (Version 5)
Quarter: 2020Q4

REPORT INFORMATION
  Report Type: Report from Study
  Country: US (occurrence: US)
  Receive Date: 20200908
  Receipt Date: 20201208
  Transmission Date: 20210113
  Serious: Yes (Other)
  Sender: FDA-Public Use
  Company Number: US-KYOWAKIRIN-2020BKK013939

PATIENT

DRUGS (5)
  1. TYLENOL EXTRA STRENGTH [Concomitant]
     Active Substance: ACETAMINOPHEN
     Indication: PRODUCT USED FOR UNKNOWN INDICATION
     Dosage: UNK
     Route: 065
  2. FISH OIL [Concomitant]
     Active Substance: FISH OIL
     Indication: PRODUCT USED FOR UNKNOWN INDICATION
     Dosage: 1000 MG
     Route: 065
  3. FLORAJEN3 [Concomitant]
     Indication: PRODUCT USED FOR UNKNOWN INDICATION
     Dosage: 460 MG
     Route: 065
  4. CRYSVITA [Suspect]
     Active Substance: BUROSUMAB-TWZA
     Indication: HEREDITARY HYPOPHOSPHATAEMIC RICKETS
     Dosage: 60 MG, 1X2 WEEKS
     Route: 058
     Dates: start: 202002, end: 202008
  5. VITAMIN D3 [Concomitant]
     Active Substance: CHOLECALCIFEROL
     Indication: PRODUCT USED FOR UNKNOWN INDICATION
     Dosage: 250 UG
     Route: 065

REACTIONS (15)
  - Spinal fracture [Not Recovered/Not Resolved]
  - Peripheral swelling [Unknown]
  - Toothache [Not Recovered/Not Resolved]
  - Abdominal pain [Not Recovered/Not Resolved]
  - Pain in extremity [Not Recovered/Not Resolved]
  - Myalgia [Unknown]
  - Drug hypersensitivity [Unknown]
  - Headache [Not Recovered/Not Resolved]
  - Joint swelling [Unknown]
  - Nausea [Not Recovered/Not Resolved]
  - Temperature regulation disorder [Not Recovered/Not Resolved]
  - Asthenia [Not Recovered/Not Resolved]
  - Fatigue [Not Recovered/Not Resolved]
  - Abdominal distension [Not Recovered/Not Resolved]
  - Pain [Not Recovered/Not Resolved]

NARRATIVE: CASE EVENT DATE: 2020
